FAERS Safety Report 5708940-8 (Version None)
Quarter: 2008Q2

REPORT INFORMATION
  Report Type: 
  Country: None (occurrence: None)
  Receive Date: 20080414
  Receipt Date: 20080414
  Transmission Date: 20081010
  Serious: Yes (Other)
  Sender: FDA-Public Use
  Company Number: None

PATIENT
  Age: 51 Year
  Sex: Female
  Weight: 67.1324 kg

DRUGS (1)
  1. NEXIUM [Suspect]
     Indication: GASTROOESOPHAGEAL REFLUX DISEASE
     Dosage: 1 CAPSULE ONCE DAILY PO
     Route: 048
     Dates: start: 20080310, end: 20080405

REACTIONS (7)
  - ABDOMINAL PAIN UPPER [None]
  - FEELING ABNORMAL [None]
  - LARYNGEAL DISORDER [None]
  - ORAL DISCOMFORT [None]
  - REBOUND EFFECT [None]
  - SENSATION OF PRESSURE [None]
  - THROAT IRRITATION [None]
